FAERS Safety Report 9745339 (Version 3)
Quarter: 2014Q1

REPORT INFORMATION
  Report Type: Spontaneous
  Country: IT (occurrence: IT)
  Receive Date: 20131211
  Receipt Date: 20140207
  Transmission Date: 20141002
  Serious: Yes (Other)
  Sender: FDA-Public Use
  Company Number: IT-ASTRAZENECA-2013SE88756

PATIENT
  Age: 14165 Day
  Sex: Male

DRUGS (9)
  1. SEROQUEL [Suspect]
     Indication: AFFECTIVE DISORDER
     Route: 048
  2. TEGRETOL [Suspect]
     Route: 048
  3. TEGRETOL [Suspect]
     Route: 048
  4. RIVOTRIL [Suspect]
     Dosage: 2.5 MG/ML ORAL DROPS, SOLUTION 20 GTT DAILY
     Route: 048
  5. LYRICA [Suspect]
     Route: 048
  6. TRITTICO [Suspect]
     Route: 048
  7. GABAPENTIN [Suspect]
     Route: 048
  8. PSYCHOPHARMACOLOGICAL TREATMENT [Concomitant]
     Indication: AFFECTIVE DISORDER
  9. PSYCHOPHARMACOLOGICAL TREATMENT [Concomitant]
     Indication: OBSESSIVE-COMPULSIVE DISORDER

REACTIONS (4)
  - Drug abuse [Unknown]
  - Intentional self-injury [Unknown]
  - Sopor [Unknown]
  - Loss of consciousness [Unknown]
